FAERS Safety Report 6668913-8 (Version None)
Quarter: 2010Q2

REPORT INFORMATION
  Report Type: 
  Country: None (occurrence: None)
  Receive Date: 20100406
  Receipt Date: 20100326
  Transmission Date: 20101027
  Serious: Yes (Hospitalization)
  Sender: FDA-Public Use
  Company Number: JP-ROCHE-694959

PATIENT
  Sex: Male

DRUGS (8)
  1. TOCILIZUMAB [Suspect]
     Route: 041
     Dates: start: 20090721, end: 20090831
  2. TOCILIZUMAB [Suspect]
     Route: 041
     Dates: start: 20090914, end: 20091109
  3. TOCILIZUMAB [Suspect]
     Route: 041
     Dates: start: 20091207, end: 20100118
  4. TOCILIZUMAB [Suspect]
     Route: 041
     Dates: start: 20100215
  5. PREDONINE [Concomitant]
     Route: 048
     Dates: end: 20090901
  6. PREDONINE [Concomitant]
     Route: 048
     Dates: start: 20090914, end: 20091221
  7. PREDONINE [Concomitant]
     Route: 048
     Dates: start: 20091222
  8. METHOTREXATE [Concomitant]
     Route: 048
     Dates: start: 20090817

REACTIONS (2)
  - ERYTHEMA MULTIFORME [None]
  - PNEUMONIA [None]
